FAERS Safety Report 7018476-2 (Version None)
Quarter: 2010Q3

REPORT INFORMATION
  Report Type: 
  Country: None (occurrence: None)
  Receive Date: 20100924
  Receipt Date: 20100911
  Transmission Date: 20110219
  Serious: Yes (Other)
  Sender: FDA-Public Use
  Company Number: 2010AP001966

PATIENT
  Age: 53 Year
  Sex: Female

DRUGS (9)
  1. GABAPENTIN [Suspect]
     Dosage: 700 MG;QD
  2. SPIRONOLACTONE [Concomitant]
  3. NADOLOL [Concomitant]
  4. LACTULOSE [Concomitant]
  5. URSODIOL [Concomitant]
  6. FERROUS SULFATE [Concomitant]
  7. OMEPRAZOLE [Concomitant]
  8. CITALOPRAM HYDROBROMIDE [Concomitant]
  9. TRAZODONE HYDROCHLORIDE [Concomitant]

REACTIONS (13)
  - AGITATION [None]
  - ANXIETY [None]
  - BLOOD ETHANOL INCREASED [None]
  - BLOOD PRESSURE DECREASED [None]
  - CONFUSIONAL STATE [None]
  - DISORIENTATION [None]
  - DRUG WITHDRAWAL SYNDROME [None]
  - HEADACHE [None]
  - HEART RATE INCREASED [None]
  - HEPATIC ENCEPHALOPATHY [None]
  - NERVOUSNESS [None]
  - PHOTOPHOBIA [None]
  - RESTLESSNESS [None]
